FAERS Safety Report 22082307 (Version 1)
Quarter: 2023Q1

REPORT INFORMATION
  Report Type: Spontaneous
  Country: FR (occurrence: FR)
  Receive Date: 20230310
  Receipt Date: 20230310
  Transmission Date: 20230418
  Serious: Yes (Other)
  Sender: FDA-Public Use
  Company Number: FR-AMGEN-FRASP2023033219

PATIENT
  Age: 49 Year
  Sex: Male

DRUGS (5)
  1. FILGRASTIM [Suspect]
     Active Substance: FILGRASTIM
     Indication: Neutropenia
     Dosage: UNK
     Route: 058
  2. BEVACIZUMAB [Suspect]
     Active Substance: BEVACIZUMAB
     Indication: Colitis ulcerative
     Dosage: UNK
     Route: 065
  3. BEVACIZUMAB [Suspect]
     Active Substance: BEVACIZUMAB
     Indication: Astrocytoma
  4. LOMUSTINE [Concomitant]
     Active Substance: LOMUSTINE
     Indication: Colitis ulcerative
     Dosage: UNK
     Route: 065
  5. LOMUSTINE [Concomitant]
     Active Substance: LOMUSTINE
     Indication: Astrocytoma

REACTIONS (4)
  - Pyoderma gangrenosum [Unknown]
  - Off label use [Unknown]
  - Asthenia [Unknown]
  - Headache [Unknown]
